FAERS Safety Report 6333508-2 (Version None)
Quarter: 2009Q3

REPORT INFORMATION
  Report Type: 
  Country: None (occurrence: None)
  Receive Date: 20090828
  Receipt Date: 20090825
  Transmission Date: 20100115
  Serious: Yes (Other)
  Sender: FDA-Public Use
  Company Number: US-GENENTECH-288490

PATIENT
  Sex: Male

DRUGS (2)
  1. AVASTIN [Suspect]
     Indication: PROSTATE CANCER
     Dosage: UNK
  2. TAXOTERE [Suspect]
     Indication: PROSTATE CANCER
     Dosage: UNK
     Route: 042

REACTIONS (1)
  - ATRIAL FLUTTER [None]
